FAERS Safety Report 12693694 (Version 1)
Quarter: 2016Q3

REPORT INFORMATION
  Report Type: Spontaneous
  Country: US (occurrence: US)
  Receive Date: 20160829
  Receipt Date: 20160829
  Transmission Date: 20161109
  Serious: No
  Sender: FDA-Public Use
  Company Number: US-PFIZER INC-2016378573

PATIENT

DRUGS (1)
  1. WATER BACTERIOSTATIC [Suspect]
     Active Substance: WATER
     Dosage: 30 ML, UNK (FTV) (25/PK)

REACTIONS (1)
  - Drug ineffective [Unknown]
